FAERS Safety Report 24071317 (Version 1)
Quarter: 2024Q3

REPORT INFORMATION
  Report Type: Report from Study
  Country: DE (occurrence: DE)
  Receive Date: 20240710
  Receipt Date: 20240710
  Transmission Date: 20241016
  Serious: No
  Sender: ROCHE
  Company Number: DE-ROCHE-3300318

PATIENT
  Age: 16 Year
  Sex: Female
  Weight: 55.0 kg

DRUGS (3)
  1. RISDIPLAM [Suspect]
     Active Substance: RISDIPLAM
     Indication: Spinal muscular atrophy
     Dosage: ON 15/ APR/2021, RECEIVED LAST DOSE OF RISDIPLAM
     Route: 048
     Dates: start: 20210901, end: 20221214
  2. CALCIUM ACETATE [Concomitant]
     Active Substance: CALCIUM ACETATE
     Dates: start: 202204
  3. CHOLECALCIFEROL [Concomitant]
     Active Substance: CHOLECALCIFEROL
     Dates: start: 20190927

REACTIONS (3)
  - Photosensitivity reaction [Recovered/Resolved]
  - Rhinorrhoea [Recovered/Resolved]
  - Burns second degree [Not Recovered/Not Resolved]

NARRATIVE: CASE EVENT DATE: 20220801
